FAERS Safety Report 7494033-9 (Version None)
Quarter: 2011Q2

REPORT INFORMATION
  Report Type: 
  Country: None (occurrence: None)
  Receive Date: 20110520
  Receipt Date: 20110512
  Transmission Date: 20111010
  Serious: Yes (Other)
  Sender: FDA-Public Use
  Company Number: US-ABBOTT-11P-163-0726605-00

PATIENT
  Sex: Female

DRUGS (1)
  1. SYNTHROID [Suspect]
     Indication: PRODUCT USED FOR UNKNOWN INDICATION

REACTIONS (5)
  - ROAD TRAFFIC ACCIDENT [None]
  - METRORRHAGIA [None]
  - MENORRHAGIA [None]
  - DRUG DOSE OMISSION [None]
  - MENSTRUAL DISORDER [None]
